FAERS Safety Report 23546984 (Version 1)
Quarter: 2024Q1

REPORT INFORMATION
  Report Type: Spontaneous
  Country: US (occurrence: US)
  Receive Date: 20240221
  Receipt Date: 20240221
  Transmission Date: 20240410
  Serious: No
  Sender: FDA-Public Use
  Company Number: US-ELI_LILLY_AND_COMPANY-US202402011318

PATIENT
  Age: 72 Year
  Sex: Female

DRUGS (3)
  1. LYUMJEV KWIKPEN [Suspect]
     Active Substance: INSULIN LISPRO
     Indication: Type 1 diabetes mellitus
     Dosage: 3 U, UNKNOWN
     Route: 065
     Dates: start: 2023
  2. LYUMJEV KWIKPEN [Suspect]
     Active Substance: INSULIN LISPRO
     Dosage: 3 U, UNKNOWN
     Route: 065
     Dates: start: 2023
  3. TRESIBA [Concomitant]
     Active Substance: INSULIN DEGLUDEC
     Indication: Type 1 diabetes mellitus

REACTIONS (1)
  - Peripheral swelling [Recovering/Resolving]

NARRATIVE: CASE EVENT DATE: 20231001
